FAERS Safety Report 5993329-7 (Version None)
Quarter: 2008Q4

REPORT INFORMATION
  Report Type: 
  Country: None (occurrence: None)
  Receive Date: 20081210
  Receipt Date: 20081210
  Transmission Date: 20090506
  Serious: Yes (Life-Threatening, Hospitalization)
  Sender: FDA-Public Use
  Company Number: None

PATIENT
  Sex: Female
  Weight: 74.8435 kg

DRUGS (3)
  1. GAS RELIEF EXTRA STRENGTH PUBLIX BRAND [Suspect]
     Indication: FLATULENCE
     Dosage: 125 MG 1 PO
     Route: 048
     Dates: start: 20081207, end: 20081207
  2. LACTASE ENZYME PUBLIX BRAND [Suspect]
     Indication: FLATULENCE
     Dosage: 125 MG 1 PO
     Route: 048
     Dates: start: 20081207, end: 20081207
  3. LACTASE ENZYME PUBLIX BRAND [Suspect]
     Indication: LACTOSE INTOLERANCE
     Dosage: 1 PILL 1 PO
     Route: 048
     Dates: start: 20030101, end: 20081207

REACTIONS (9)
  - BLINDNESS [None]
  - CHILLS [None]
  - DIARRHOEA [None]
  - HYPERHIDROSIS [None]
  - LOSS OF CONSCIOUSNESS [None]
  - RESPIRATORY ARREST [None]
  - SWOLLEN TONGUE [None]
  - URTICARIA [None]
  - VOMITING [None]
